FAERS Safety Report 7503840-5 (Version None)
Quarter: 2011Q2

REPORT INFORMATION
  Report Type: 
  Country: None (occurrence: None)
  Receive Date: 20110525
  Receipt Date: 20110516
  Transmission Date: 20111010
  Serious: Yes (Other)
  Sender: FDA-Public Use
  Company Number: FR-MERCK-1105FRA00078

PATIENT
  Age: 54 Year
  Sex: Female
  Weight: 76 kg

DRUGS (12)
  1. LANSOPRAZOLE [Suspect]
     Route: 048
  2. FLUTICASONE PROPIONATE AND SALMETEROL XINAFOATE [Suspect]
     Route: 055
  3. FUROSEMIDE [Concomitant]
     Route: 065
  4. POTASSIUM CHLORIDE [Concomitant]
     Route: 065
  5. BENFLUOREX HYDROCHLORIDE [Suspect]
     Indication: TYPE 2 DIABETES MELLITUS
     Route: 048
     Dates: start: 20040301, end: 20060901
  6. SINGULAIR [Suspect]
     Route: 048
  7. CANDESARTAN CILEXETIL [Concomitant]
     Route: 065
  8. LEVOTHYROXINE SODIUM [Suspect]
     Route: 048
  9. ESOMEPRAZOLE MAGNESIUM [Concomitant]
     Route: 065
  10. ALTHIAZIDE AND SPIRONOLACTONE [Concomitant]
     Route: 048
  11. CARVEDILOL [Concomitant]
     Route: 048
  12. PRAVASTATIN SODIUM [Suspect]
     Route: 048

REACTIONS (2)
  - AORTIC VALVE INCOMPETENCE [None]
  - MITRAL VALVE INCOMPETENCE [None]
